FAERS Safety Report 6900697-8 (Version None)
Quarter: 2010Q3

REPORT INFORMATION
  Report Type: 
  Country: None (occurrence: None)
  Receive Date: 20100730
  Receipt Date: 20100717
  Transmission Date: 20110219
  Serious: Yes (Hospitalization, Other)
  Sender: FDA-Public Use
  Company Number: 2010AP001472

PATIENT
  Age: 22 Year
  Sex: Male

DRUGS (2)
  1. RISPERIDONE [Suspect]
     Indication: AGGRESSION
     Dosage: 1 MG; QD
  2. RISPERIDONE [Suspect]
     Indication: SEXUALLY INAPPROPRIATE BEHAVIOUR
     Dosage: 1 MG; QD

REACTIONS (3)
  - BARRETT'S OESOPHAGUS [None]
  - GASTRODUODENAL ULCER [None]
  - HYPERPROLACTINAEMIA [None]
